FAERS Safety Report 13689319 (Version 1)
Quarter: 2017Q2

REPORT INFORMATION
  Report Type: Spontaneous
  Country: US (occurrence: US)
  Receive Date: 20170625
  Receipt Date: 20170625
  Transmission Date: 20170830
  Serious: Yes (Life-Threatening, Disabling)
  Sender: FDA-Public Use
  Company Number: None

PATIENT
  Age: 48 Year
  Sex: Female
  Weight: 58.5 kg

DRUGS (2)
  1. DIAZEPAM. [Suspect]
     Active Substance: DIAZEPAM
     Indication: POST-TRAUMATIC STRESS DISORDER
     Dates: start: 20030711, end: 20161015
  2. DIAZEPAM. [Suspect]
     Active Substance: DIAZEPAM
     Indication: ANXIETY
     Dates: start: 20030711, end: 20161015

REACTIONS (8)
  - Drug tolerance increased [None]
  - Suicidal ideation [None]
  - Withdrawal syndrome [None]
  - Visual impairment [None]
  - Balance disorder [None]
  - Tinnitus [None]
  - Psychotic disorder [None]
  - Blood pressure inadequately controlled [None]

NARRATIVE: CASE EVENT DATE: 20161015
